FAERS Safety Report 23822957 (Version 1)
Quarter: 2024Q2

REPORT INFORMATION
  Report Type: Spontaneous
  Country: US (occurrence: US)
  Receive Date: 20240506
  Receipt Date: 20240506
  Transmission Date: 20240716
  Serious: Yes (Other)
  Sender: FDA-Public Use
  Company Number: US-ABBVIE-5745247

PATIENT
  Age: 74 Year
  Sex: Female

DRUGS (7)
  1. CYCLOSPORINE [Suspect]
     Active Substance: CYCLOSPORINE
     Indication: Prophylaxis against graft versus host disease
     Dosage: TAPERED OFF BY DAY 180
     Route: 048
  2. CYCLOSPORINE [Suspect]
     Active Substance: CYCLOSPORINE
     Indication: Prophylaxis against graft versus host disease
     Dosage: 5MG/KG ON DAY -3 AND CONTINUED TO DAY 150
     Route: 048
  3. RAPAMYCIN [Suspect]
     Active Substance: SIROLIMUS
     Indication: Prophylaxis against graft versus host disease
     Dosage: DAY  3 AND ADJUSTED TO MAINTAIN TROUGH LEVELS BETWEEN 3 AND 12 NG/ML THROUGH DAY 180, FOLLOWED BY...
     Route: 065
  4. MYCOPHENOLATE MOFETIL [Suspect]
     Active Substance: MYCOPHENOLATE MOFETIL
     Indication: Prophylaxis against graft versus host disease
     Dosage: 15MG/KG TO DAY 100
     Route: 065
  5. MYCOPHENOLATE MOFETIL [Suspect]
     Active Substance: MYCOPHENOLATE MOFETIL
     Indication: Prophylaxis against graft versus host disease
     Dosage: TAPERED TO DAY 150
     Route: 065
  6. MYCOPHENOLATE MOFETIL [Suspect]
     Active Substance: MYCOPHENOLATE MOFETIL
     Indication: Prophylaxis against graft versus host disease
     Dosage: TIME INTERVAL: 0.33333333 DAYS: 15MG/KG FROM DAY 0 TO 30
     Route: 065
  7. GRANULOCYTE COLONY-STIMULATING FACTOR NOS [Concomitant]
     Active Substance: GRANULOCYTE COLONY-STIMULATING FACTOR NOS
     Indication: Neutrophil count abnormal
     Dosage: 2 MCG/KG ON DAY +5
     Route: 058

REACTIONS (1)
  - Graft versus host disease in gastrointestinal tract [Unknown]
